FAERS Safety Report 25673007 (Version 1)
Quarter: 2025Q3

REPORT INFORMATION
  Report Type: Spontaneous
  Country: EU (occurrence: EU)
  Receive Date: 20250812
  Receipt Date: 20250812
  Transmission Date: 20251021
  Serious: Yes (Hospitalization, Other)
  Sender: Haleon PLC
  Company Number: None

PATIENT
  Age: 27 Year
  Sex: Male
  Weight: 82 kg

DRUGS (7)
  1. ADVIL [Suspect]
     Active Substance: IBUPROFEN
     Indication: Headache
     Route: 048
     Dates: start: 20241212, end: 20241212
  2. DAFALGAN [Concomitant]
     Active Substance: ACETAMINOPHEN
     Indication: Headache
     Route: 048
     Dates: start: 20241212, end: 20241213
  3. KETOPROFEN [Suspect]
     Active Substance: KETOPROFEN
     Indication: Headache
     Route: 042
     Dates: start: 20241213, end: 20241213
  4. CAFFEINE CITRATE [Concomitant]
     Active Substance: CAFFEINE CITRATE
     Indication: Headache
     Route: 042
     Dates: start: 20241213, end: 20241213
  5. KETOPROFEN [Suspect]
     Active Substance: KETOPROFEN
     Indication: Headache
     Route: 048
     Dates: start: 20241213, end: 20241214
  6. CLARADOL,CAFFEINE [Concomitant]
     Indication: Headache
     Route: 048
     Dates: start: 20241213, end: 20241214
  7. TRAMADOL HYDROCHLORIDE [Concomitant]
     Active Substance: TRAMADOL HYDROCHLORIDE
     Indication: Headache
     Route: 048
     Dates: start: 20241212, end: 20241213

REACTIONS (2)
  - Herpes zoster meningitis [Recovering/Resolving]
  - Condition aggravated [Recovering/Resolving]

NARRATIVE: CASE EVENT DATE: 20241214
